FAERS Safety Report 14497805 (Version 1)
Quarter: 2018Q1

REPORT INFORMATION
  Report Type: Spontaneous
  Country: HU (occurrence: HU)
  Receive Date: 20180207
  Receipt Date: 20180207
  Transmission Date: 20180509
  Serious: Yes (Death)
  Sender: FDA-Public Use
  Company Number: HU-ALLERGAN-1805911US

PATIENT
  Sex: Female

DRUGS (1)
  1. NEBIVOLOL HCL - BP [Suspect]
     Active Substance: NEBIVOLOL
     Indication: CARDIAC DISORDER
     Route: 065

REACTIONS (8)
  - Sudden death [Fatal]
  - Judgement impaired [Fatal]
  - Overdose [Fatal]
  - Off label use [Unknown]
  - Prescription drug used without a prescription [Unknown]
  - Oedema peripheral [Fatal]
  - Depression [Fatal]
  - Vomiting [Fatal]
